FAERS Safety Report 5682337-1 (Version None)
Quarter: 2008Q1

REPORT INFORMATION
  Report Type: 
  Country: None (occurrence: None)
  Receive Date: 20080327
  Receipt Date: 20080321
  Transmission Date: 20080703
  Serious: Yes (Hospitalization)
  Sender: FDA-Public Use
  Company Number: BE-ASTRAZENECA-2008AC00724

PATIENT
  Age: 76 Year
  Sex: Male

DRUGS (1)
  1. SYMBICORT [Suspect]
     Indication: PNEUMONIA
     Route: 055
     Dates: start: 20080114

REACTIONS (4)
  - ARRHYTHMIA [None]
  - COUGH [None]
  - DYSPHONIA [None]
  - MUSCLE SPASMS [None]
